FAERS Safety Report 9510192 (Version 1)
Quarter: 2013Q3

REPORT INFORMATION
  Report Type: Spontaneous
  Country: US (occurrence: US)
  Receive Date: 20130909
  Receipt Date: 20130909
  Transmission Date: 20140515
  Serious: No
  Sender: FDA-Public Use
  Company Number: US-BRISTOL-MYERS SQUIBB COMPANY-18711192

PATIENT
  Age: 3 Decade
  Sex: Female

DRUGS (1)
  1. ABILIFY TABS 5 MG [Suspect]
     Indication: DEPRESSION
     Dosage: STARTED ON ABILIFY 2 MG AND INCREASED THE DOSE TO 5 MG

REACTIONS (3)
  - Lethargy [Unknown]
  - Agitation [Unknown]
  - Feeling jittery [Unknown]
